FAERS Safety Report 7035553 (Version 3)
Quarter: 2013Q4

REPORT INFORMATION
  Report Type: Report from Study
  Country: MX (occurrence: MX)
  Receive Date: 20090629
  Receipt Date: 20131103
  Transmission Date: 20140711
  Serious: No
  Sender: FDA-Public Use
  Company Number: PHHY2009MX24336

PATIENT
  Age: 57 Year
  Sex: Female

DRUGS (6)
  1. STALEVO [Suspect]
     Indication: PARKINSON^S DISEASE
     Dosage: 5 TABLET (100/25/200 MG) DAILY
     Route: 048
     Dates: start: 200608
  2. STALEVO [Suspect]
     Dosage: 5 TABLET (100/25/200 MG) DAILY
     Route: 048
     Dates: start: 20090612
  3. STALEVO [Suspect]
     Dosage: 3 TABLETS (100/25/200 MG) DAILY
     Route: 048
  4. BI-EUGLUCON [Concomitant]
     Indication: DIABETES MELLITUS
     Dosage: 1 DF, UNK
     Dates: start: 20130907
  5. CLONAZEPAM [Concomitant]
     Indication: SLEEP DISORDER
     Dosage: 0.25 DF, UNK
     Dates: start: 201310
  6. BI-EUGLUCON [Concomitant]
     Indication: DIABETES MELLITUS
     Dosage: 1 UKN, DAILY
     Dates: start: 20130907

REACTIONS (12)
  - Dysstasia [Recovering/Resolving]
  - Abnormal behaviour [Unknown]
  - Dyskinesia [Unknown]
  - Tremor [Unknown]
  - Muscle spasms [Unknown]
  - Vomiting [Unknown]
  - Diarrhoea [Unknown]
  - Condition aggravated [Unknown]
  - Gait disturbance [Recovering/Resolving]
  - Hypertension [Unknown]
  - Depression [Unknown]
  - Somnolence [Unknown]
